FAERS Safety Report 5498262-5 (Version None)
Quarter: 2007Q4

REPORT INFORMATION
  Report Type: 
  Country: None (occurrence: None)
  Receive Date: 20071025
  Receipt Date: 20070423
  Transmission Date: 20080405
  Serious: No
  Sender: FDA-Public Use
  Company Number: A0648359A

PATIENT
  Age: 73 Year
  Sex: Female

DRUGS (9)
  1. ADVAIR DISKUS 100/50 [Suspect]
     Indication: ASTHMA
     Dosage: 1PUFF TWICE PER DAY
     Route: 055
     Dates: start: 20070301, end: 20070401
  2. ZETIA [Concomitant]
  3. WELCHOL [Concomitant]
  4. LEVOTHYROXINE SODIUM [Concomitant]
  5. EVISTA [Concomitant]
  6. TOPROL-XL [Concomitant]
  7. ACTOS [Concomitant]
  8. LISINOPRIL [Concomitant]
  9. PLAVIX [Concomitant]

REACTIONS (2)
  - GASTROOESOPHAGEAL REFLUX DISEASE [None]
  - TONGUE ULCERATION [None]
